FAERS Safety Report 9442399 (Version 1)
Quarter: 2013Q3

REPORT INFORMATION
  Report Type: Spontaneous
  Country: US (occurrence: None)
  Receive Date: 20130805
  Receipt Date: 20130805
  Transmission Date: 20140515
  Serious: Yes (Hospitalization)
  Sender: FDA-Public Use
  Company Number: None

PATIENT
  Age: 80 Year
  Sex: Female

DRUGS (6)
  1. APIXABAN [Suspect]
     Dosage: 5 MG BID ORAL
     Route: 048
     Dates: start: 20130716
  2. LOSARTAN [Concomitant]
  3. SOTALOL [Concomitant]
  4. LASIX [Concomitant]
  5. GLIPIZIDE [Concomitant]
  6. AMLODIPINE [Concomitant]

REACTIONS (1)
  - Deep vein thrombosis [None]
